FAERS Safety Report 6257947-3 (Version None)
Quarter: 2009Q3

REPORT INFORMATION
  Report Type: 
  Country: None (occurrence: None)
  Receive Date: 20090702
  Receipt Date: 20090617
  Transmission Date: 20100115
  Serious: Yes (Hospitalization)
  Sender: FDA-Public Use
  Company Number: 2009001815

PATIENT
  Age: 57 Year
  Sex: Male

DRUGS (2)
  1. ERLOTINIB / PLACEBO [Suspect]
     Indication: PANCREATIC NEOPLASM
     Dosage: (50 MG, QD), ORAL
     Route: 048
     Dates: start: 20081007, end: 20090127
  2. GEMCITABINE [Suspect]
     Dosage: (1000 MG/M2), INTRAVENOUS
     Route: 042
     Dates: start: 20081007, end: 20090113

REACTIONS (1)
  - CARDIAC FAILURE [None]
